FAERS Safety Report 6520543-4 (Version None)
Quarter: 2009Q4

REPORT INFORMATION
  Report Type: 
  Country: None (occurrence: None)
  Receive Date: 20091229
  Receipt Date: 20091214
  Transmission Date: 20100525
  Serious: Yes (Other)
  Sender: FDA-Public Use
  Company Number: BR-PFIZER INC-2009309712

PATIENT
  Age: 52 Year
  Sex: Female

DRUGS (13)
  1. LIPITOR [Suspect]
     Indication: BLOOD CHOLESTEROL INCREASED
     Dosage: 20 MG, 1X/DAY
     Route: 048
     Dates: end: 20090701
  2. LIPITOR [Suspect]
     Dosage: 20 MG, 2X/DAY
     Route: 048
     Dates: start: 20090701
  3. LASIX [Concomitant]
     Dosage: UNK
  4. FORMOTEROL W/BUDESONIDE [Concomitant]
     Dosage: UNK
  5. FERROUS SULFATE [Concomitant]
     Dosage: UNK
  6. CLORANA [Concomitant]
     Dosage: UNK
  7. LOSARTAN [Concomitant]
     Dosage: UNK
  8. NIFEDIPINE [Concomitant]
     Dosage: UNK
  9. METFORMIN [Concomitant]
     Dosage: UNK
  10. INSULIN HUMAN [Concomitant]
     Dosage: UNK
  11. OMEPRAZOLE [Concomitant]
     Dosage: UNK
  12. PARACETAMOL [Concomitant]
     Dosage: UNK
  13. BEROTEC [Concomitant]
     Dosage: UNK

REACTIONS (2)
  - DIARRHOEA [None]
  - THROMBOSIS [None]
